FAERS Safety Report 26054287 (Version 1)
Quarter: 2025Q4

REPORT INFORMATION
  Report Type: Report from Study
  Country: EU (occurrence: EU)
  Receive Date: 20251117
  Receipt Date: 20251117
  Transmission Date: 20260117
  Serious: Yes (Hospitalization, Other)
  Sender: AMGEN
  Company Number: EU-ROCHE-10000309618

PATIENT

DRUGS (6)
  1. BEVACIZUMAB [Suspect]
     Active Substance: BEVACIZUMAB
     Indication: Neoplasm
     Dosage: ON 18-NOV-2024, MOST RECENT DOSE OF CANCER TREATMENTPRIOR TO AE/SAE ONSET: 400 MG
     Route: 040
     Dates: start: 20231218
  2. BEVACIZUMAB [Suspect]
     Active Substance: BEVACIZUMAB
     Dosage: UNK
     Route: 040
     Dates: start: 20250514
  3. BEVACIZUMAB [Suspect]
     Active Substance: BEVACIZUMAB
     Dosage: ON 18-NOV-2024, MOST RECENT DOSE OF CANCER TREATMENTPRIOR TO AE/SAE ONSET: 700 MG.
     Route: 040
     Dates: start: 20231228
  4. IRINOTECAN [Suspect]
     Active Substance: IRINOTECAN
     Indication: Neoplasm
     Dosage: THERAPY START DATE: 16-SEP-2024
     Route: 040
     Dates: start: 20240916
  5. OXALIPLATIN [Suspect]
     Active Substance: OXALIPLATIN
     Indication: Neoplasm
     Dosage: UNK UNK, Q4WK (DATE OF MOST RECENT DOSE OF CANCER TREATMENTPRIOR TO AE/SAE ONSET: 7-MAY-2024 DOSE OF
     Route: 040
     Dates: start: 20231120
  6. CAPECITABINE [Suspect]
     Active Substance: CAPECITABINE
     Indication: Neoplasm
     Dosage: UNK (EVERY 2 DAYS), DATE OF MOST RECENT DOSE OF CANCER TREATMENTPRIOR TO AE/SAE ONSET: 07-MAY-2024 D
     Route: 048
     Dates: start: 20231121

REACTIONS (3)
  - Nephrolithiasis [Recovered/Resolved]
  - Neutropenia [Recovered/Resolved]
  - Respiratory tract infection [Recovered/Resolved]

NARRATIVE: CASE EVENT DATE: 20240527
